FAERS Safety Report 8329046-8 (Version None)
Quarter: 2012Q2

REPORT INFORMATION
  Report Type: 
  Country: None (occurrence: None)
  Receive Date: 20120502
  Receipt Date: 20120425
  Transmission Date: 20120825
  Serious: Yes (Other)
  Sender: FDA-Public Use
  Company Number: DE-ABBOTT-12P-062-0929503-00

PATIENT
  Age: 75 Year
  Sex: Female

DRUGS (1)
  1. VALPROATE SODIUM [Suspect]
     Indication: CEREBRAL HAEMORRHAGE
     Route: 065
     Dates: start: 20120422, end: 20120422

REACTIONS (3)
  - TACHYCARDIA [None]
  - OVERDOSE [None]
  - LOSS OF CONSCIOUSNESS [None]
